FAERS Safety Report 5733625-1 (Version None)
Quarter: 2008Q2

REPORT INFORMATION
  Report Type: 
  Country: None (occurrence: None)
  Receive Date: 20080509
  Receipt Date: 20080429
  Transmission Date: 20081010
  Serious: Yes (Hospitalization, Other)
  Sender: FDA-Public Use
  Company Number: CA-PFIZER INC-2008038216

PATIENT
  Sex: Male
  Weight: 96.6 kg

DRUGS (6)
  1. MARAVIROC [Suspect]
     Indication: HIV INFECTION
     Route: 048
  2. LAMIVUDINE [Concomitant]
     Indication: HIV INFECTION
     Route: 048
  3. DARUNAVIR [Concomitant]
     Indication: HIV INFECTION
     Route: 048
  4. RITONAVIR [Concomitant]
     Route: 048
  5. RALTEGRAVIR [Concomitant]
     Indication: HIV INFECTION
     Route: 048
  6. ETRAVIRINE [Concomitant]
     Route: 048

REACTIONS (1)
  - CORONARY ARTERY DISEASE [None]
